FAERS Safety Report 20237182 (Version 6)
Quarter: 2022Q2

REPORT INFORMATION
  Report Type: Spontaneous
  Country: US (occurrence: None)
  Receive Date: 20211228
  Receipt Date: 20220528
  Transmission Date: 20220721
  Serious: Yes (Other)
  Sender: FDA-Public Use
  Company Number: US-ROCHE-2952749

PATIENT
  Age: 81 Year
  Sex: Female

DRUGS (4)
  1. ESBRIET [Suspect]
     Active Substance: PIRFENIDONE
     Indication: Idiopathic pulmonary fibrosis
     Dosage: 3 TIMES DAILY
     Route: 048
     Dates: start: 20211001
  2. ESBRIET [Suspect]
     Active Substance: PIRFENIDONE
     Indication: Parkinson^s disease
     Dosage: TAKE 2 CAPSULES BY MOUTH 3 TIMES DAILY
     Route: 048
     Dates: start: 20211102
  3. ESBRIET [Suspect]
     Active Substance: PIRFENIDONE
     Route: 048
     Dates: start: 20211001
  4. ESBRIET [Suspect]
     Active Substance: PIRFENIDONE
     Dosage: TAKE 2 CAPSULES BY MOUTH AT BREAKFAST, THEN ONE CAPSULE AT LUNCH, THEN 1 CAPSULE AT DINNER
     Route: 048
     Dates: start: 20211001

REACTIONS (13)
  - Illness [Unknown]
  - Dizziness [Unknown]
  - Nausea [Unknown]
  - Ageusia [Unknown]
  - Decreased appetite [Unknown]
  - Fatigue [Unknown]
  - Diarrhoea [Unknown]
  - Asthenia [Unknown]
  - Idiopathic pulmonary fibrosis [Unknown]
  - Drug ineffective [Unknown]
  - Disease progression [Unknown]
  - Gastric disorder [Unknown]
  - Product dose omission issue [Unknown]

NARRATIVE: CASE EVENT DATE: 20211001
